FAERS Safety Report 24641790 (Version 1)
Quarter: 2024Q4

REPORT INFORMATION
  Report Type: Report from Study
  Country: US (occurrence: US)
  Receive Date: 20241120
  Receipt Date: 20241120
  Transmission Date: 20250114
  Serious: Yes (Hospitalization, Other)
  Sender: ABBVIE
  Company Number: US-ABBVIE-6006867

PATIENT
  Age: 42 Year
  Sex: Female
  Weight: 104 kg

DRUGS (8)
  1. SYNTHROID [Suspect]
     Active Substance: LEVOTHYROXINE SODIUM
     Indication: Thyroidectomy
     Dosage: START DATE TEXT 8 TO 9 YEARS AGO
     Route: 048
     Dates: start: 2015
  2. VITAMIN D [Concomitant]
     Active Substance: VITAMIN D NOS
     Indication: Vitamin D deficiency
  3. GABAPENTIN [Concomitant]
     Active Substance: GABAPENTIN
     Indication: Nervous system disorder
  4. VITAMIN B12 [Concomitant]
     Active Substance: CYANOCOBALAMIN
     Indication: Malabsorption
  5. EXCEDRIN [Concomitant]
     Active Substance: ACETAMINOPHEN\ASPIRIN\CAFFEINE
     Indication: Migraine
  6. OMEPRAZOLE [Concomitant]
     Active Substance: OMEPRAZOLE
     Indication: Gastrooesophageal reflux disease
  7. PRAVASTATIN [Concomitant]
     Active Substance: PRAVASTATIN
     Indication: Prophylaxis
  8. LEVOTHYROXINE [Suspect]
     Active Substance: LEVOTHYROXINE
     Indication: Thyroidectomy
     Route: 065

REACTIONS (15)
  - Intervertebral disc protrusion [Unknown]
  - Rash [Recovered/Resolved]
  - Spinal cord injury lumbar [Recovering/Resolving]
  - Volvulus [Not Recovered/Not Resolved]
  - Gait disturbance [Not Recovered/Not Resolved]
  - Brain oedema [Recovered/Resolved]
  - Fall [Recovering/Resolving]
  - Nerve injury [Not Recovered/Not Resolved]
  - Malabsorption [Unknown]
  - Thyroid function test abnormal [Recovering/Resolving]
  - Hypoaesthesia [Not Recovered/Not Resolved]
  - Gastrointestinal disorder [Not Recovered/Not Resolved]
  - Pancreatic failure [Not Recovered/Not Resolved]
  - Irritable bowel syndrome [Not Recovered/Not Resolved]
  - Spinal fusion surgery [Unknown]

NARRATIVE: CASE EVENT DATE: 20220101
